FAERS Safety Report 5036149-2 (Version None)
Quarter: 2006Q2

REPORT INFORMATION
  Report Type: 
  Country: None (occurrence: None)
  Receive Date: 20060531
  Receipt Date: 20060228
  Transmission Date: 20061013
  Serious: No
  Sender: FDA-Public Use
  Company Number: PHEH2006US02761

PATIENT
  Age: 80 Year
  Sex: Female

DRUGS (1)
  1. EXJADE [Suspect]
     Dosage: 20 MG/KG QD ORAL
     Route: 048

REACTIONS (2)
  - ANAEMIA [None]
  - DIARRHOEA [None]
